FAERS Safety Report 5509391-1 (Version None)
Quarter: 2007Q4

REPORT INFORMATION
  Report Type: 
  Country: None (occurrence: None)
  Receive Date: 20071107
  Receipt Date: 20071031
  Transmission Date: 20080405
  Serious: Yes (Death, Hospitalization, Other)
  Sender: FDA-Public Use
  Company Number: US-MERCK-0608USA01320

PATIENT
  Age: 70 Year
  Sex: Female

DRUGS (3)
  1. FOSAMAX [Suspect]
     Indication: OSTEOPOROSIS
     Route: 048
  2. LOPID [Concomitant]
     Indication: BLOOD CHOLESTEROL
     Route: 065
  3. GLUCOPHAGE [Concomitant]
     Route: 065

REACTIONS (11)
  - ANXIETY [None]
  - BLADDER CANCER [None]
  - DEATH [None]
  - DELUSION [None]
  - DEPRESSION [None]
  - DIABETIC COMA [None]
  - FALL [None]
  - JAW FRACTURE [None]
  - OSTEOMYELITIS [None]
  - OSTEONECROSIS [None]
  - WOUND [None]
